FAERS Safety Report 9676345 (Version 1)
Quarter: 2013Q4

REPORT INFORMATION
  Report Type: Spontaneous
  Country: US (occurrence: None)
  Receive Date: 20131106
  Receipt Date: 20131106
  Transmission Date: 20140711
  Serious: Yes (Death)
  Sender: FDA-Public Use
  Company Number: 2013P1020601

PATIENT
  Age: 91 Year
  Sex: Female
  Weight: 40.82 kg

DRUGS (11)
  1. METHYLPREDNISOLONE [Suspect]
     Indication: RESPIRATORY DISORDER
     Route: 048
     Dates: start: 20131016, end: 20131016
  2. METHYLPREDNISOLONE [Suspect]
     Indication: PNEUMONIA
     Route: 048
     Dates: start: 20131016, end: 20131016
  3. FLU SHOT [Suspect]
  4. OXYGEN [Concomitant]
  5. PREDNISONE [Concomitant]
  6. LEVOTHYROXINE [Concomitant]
  7. PLAVIX [Concomitant]
  8. COZAAR [Concomitant]
  9. MEGACE SUSPENSION [Concomitant]
  10. ATIVAN [Concomitant]
  11. PAXIL [Concomitant]

REACTIONS (2)
  - Vomiting [None]
  - Fall [None]
